FAERS Safety Report 8828269 (Version 4)
Quarter: 2012Q4

REPORT INFORMATION
  Report Type: 
  Country: GB (occurrence: GB)
  Receive Date: 20121008
  Receipt Date: 20121126
  Transmission Date: 20130627
  Serious: Yes (Hospitalization, Other)
  Sender: FDA-Public Use
  Company Number: PHFR2012GB005248

PATIENT
  Age: 43 Year
  Sex: Male

DRUGS (3)
  1. CLOZARIL [Suspect]
     Indication: SCHIZOPHRENIA
     Dosage: 250 mg, UNK
     Route: 048
     Dates: start: 20100308
  2. CLOZARIL [Suspect]
     Dosage: 200 mg, UNK
     Route: 048
  3. KWELLS [Concomitant]
     Indication: SALIVARY HYPERSECRETION
     Dosage: 300 ug, UNK
     Route: 048

REACTIONS (6)
  - Urinary tract infection [Recovering/Resolving]
  - Ankle fracture [Recovering/Resolving]
  - Fall [Recovering/Resolving]
  - Malaise [Recovering/Resolving]
  - Lower respiratory tract infection [Unknown]
  - Somnolence [Unknown]
